FAERS Safety Report 9690903 (Version 1)
Quarter: 2013Q4

REPORT INFORMATION
  Report Type: Spontaneous
  Country: GB (occurrence: GB)
  Receive Date: 20131115
  Receipt Date: 20131115
  Transmission Date: 20140711
  Serious: Yes (Other)
  Sender: FDA-Public Use
  Company Number: GB-ACTAVIS-2013-21090

PATIENT
  Age: 60 Year
  Sex: Male
  Weight: 87 kg

DRUGS (3)
  1. GEMCITABINE (UNKNOWN) [Suspect]
     Indication: BLADDER CANCER
     Dosage: 1500 MG, UNK
     Route: 042
     Dates: start: 20130718
  2. CARBOPLATIN (UNKNOWN) [Suspect]
     Indication: BLADDER CANCER
     Dosage: 400 MG, UNK
     Route: 042
     Dates: start: 20130718
  3. VANDETANIB [Concomitant]
     Indication: PRODUCT USED FOR UNKNOWN INDICATION
     Dosage: UNK
     Route: 065

REACTIONS (1)
  - Deep vein thrombosis [Recovering/Resolving]
